FAERS Safety Report 6215736-X (Version None)
Quarter: 2009Q2

REPORT INFORMATION
  Report Type: 
  Country: None (occurrence: None)
  Receive Date: 20090605
  Receipt Date: 20090529
  Transmission Date: 20091009
  Serious: Yes (Life-Threatening, Hospitalization)
  Sender: FDA-Public Use
  Company Number: US-KINGPHARMUSA00001-K200900652

PATIENT
  Age: 69 Year
  Sex: Female

DRUGS (9)
  1. ALTACE [Suspect]
     Indication: HYPERTENSION
     Dosage: UNK
     Route: 048
     Dates: start: 20000101, end: 20090315
  2. ZOLPIDEM TARTRATE [Interacting]
     Indication: SLEEP DISORDER
     Dosage: 10 MG, QD
     Route: 048
     Dates: start: 20060101, end: 20090313
  3. HALOPERIDOL [Interacting]
     Indication: RESTLESSNESS
     Dosage: 2 MG, QD
     Route: 048
     Dates: start: 20070101, end: 20090313
  4. THEOPHYLLINE [Interacting]
     Indication: CHRONIC OBSTRUCTIVE PULMONARY DISEASE
     Dosage: 250 MG, QD
     Route: 048
     Dates: start: 20050101
  5. PANTOPRAZOLE SODIUM [Interacting]
     Indication: PROPHYLAXIS AGAINST GASTROINTESTINAL ULCER
     Dosage: 20 MG, QD
     Route: 048
     Dates: start: 20080101
  6. CALCIUM [Concomitant]
     Indication: OSTEOPOROSIS
     Dosage: 600 MG, QD
     Route: 048
     Dates: start: 20030101, end: 20090313
  7. IBUPROFEN [Concomitant]
     Indication: PAIN
     Dosage: 1200 MG, QD
     Route: 048
     Dates: start: 20090226, end: 20090311
  8. CLOPIDOGREL [Concomitant]
     Indication: ISCHAEMIC HEART DISEASE PROPHYLAXIS
     Dosage: 75 MG, UNK
     Route: 048
     Dates: start: 20090226, end: 20090315
  9. NEBIVOLOL [Concomitant]
     Indication: HYPERTENSION
     Dosage: 2.5 MG, UNK
     Route: 048
     Dates: start: 20000101

REACTIONS (12)
  - ANAEMIA [None]
  - BLOOD CREATINE PHOSPHOKINASE INCREASED [None]
  - DRUG INTERACTION [None]
  - DYSARTHRIA [None]
  - DYSPNOEA [None]
  - FEELING HOT [None]
  - HYPERKINESIA [None]
  - HYPONATRAEMIA [None]
  - NAUSEA [None]
  - PAIN IN EXTREMITY [None]
  - RHABDOMYOLYSIS [None]
  - TACHYCARDIA [None]
